FAERS Safety Report 11080318 (Version 1)
Quarter: 2015Q2

REPORT INFORMATION
  Report Type: Spontaneous
  Country: IN (occurrence: None)
  Receive Date: 20150429
  Receipt Date: 20150429
  Transmission Date: 20150821
  Serious: Yes (Death)
  Sender: FDA-Public Use
  Company Number: NSR_02055_2015

PATIENT
  Age: 14 Year
  Sex: Female
  Weight: 25 kg

DRUGS (7)
  1. SUCCINYLCHOLINE [Suspect]
     Active Substance: SUCCINYLCHOLINE
     Indication: ANAESTHESIA
  2. NITROUS OXIDE W/OXYGEN [Suspect]
     Active Substance: NITROUS OXIDE\OXYGEN
     Indication: PRODUCT USED FOR UNKNOWN INDICATION
     Dosage: 1:2 MIXTURE, ONCE
  3. PROPRANOLOL [Suspect]
     Active Substance: PROPRANOLOL\PROPRANOLOL HYDROCHLORIDE
     Indication: PRODUCT USED FOR UNKNOWN INDICATION
     Route: 048
  4. FENTANYL (FENTANYL) [Suspect]
     Active Substance: FENTANYL
     Indication: ANAESTHESIA
  5. POLIDOCANOL [Concomitant]
     Active Substance: POLIDOCANOL
  6. THIOPENTONE SODIUM [Suspect]
     Active Substance: THIOPENTAL SODIUM
     Indication: ANAESTHESIA
  7. ISOFLURANE. [Suspect]
     Active Substance: ISOFLURANE
     Indication: PRODUCT USED FOR UNKNOWN INDICATION

REACTIONS (10)
  - Drug interaction [None]
  - Pallor [None]
  - Blood bilirubin increased [None]
  - Trismus [None]
  - Bradycardia [None]
  - Haemoglobin decreased [None]
  - Hyperkalaemia [None]
  - Malnutrition [None]
  - Jaundice [None]
  - Cardiac arrest [None]
